FAERS Safety Report 9842229 (Version 1)
Quarter: 2014Q1

REPORT INFORMATION
  Report Type: Spontaneous
  Country: US (occurrence: US)
  Receive Date: 20140124
  Receipt Date: 20140124
  Transmission Date: 20141002
  Serious: Yes (Death)
  Sender: FDA-Public Use
  Company Number: US-GLAXOSMITHKLINE-A1058057A

PATIENT
  Sex: Female

DRUGS (1)
  1. PROMACTA [Suspect]
     Indication: HEPATIC CANCER
     Dosage: 25MG UNKNOWN

REACTIONS (1)
  - Death [Fatal]
